FAERS Safety Report 14618374 (Version 2)
Quarter: 2018Q2

REPORT INFORMATION
  Report Type: Report from Study
  Country: US (occurrence: US)
  Receive Date: 20180309
  Receipt Date: 20180530
  Transmission Date: 20180711
  Serious: Yes (Other)
  Sender: FDA-Public Use
  Company Number: US-GLAXOSMITHKLINE-US2018GSK039583

PATIENT
  Age: 25 Year
  Sex: Female
  Weight: 65.76 kg

DRUGS (3)
  1. BUPROPION HYDROCHLORIDE. [Suspect]
     Active Substance: BUPROPION HYDROCHLORIDE
     Indication: DEPRESSION
     Dosage: UNK
     Dates: start: 201710
  2. HUMIRA [Suspect]
     Active Substance: ADALIMUMAB
     Indication: CROHN^S DISEASE
     Dosage: 40 MG, UNK
     Route: 058
     Dates: start: 201710, end: 20180131
  3. LEXAPRO [Suspect]
     Active Substance: ESCITALOPRAM OXALATE
     Indication: ANXIETY
     Dosage: UNK
     Dates: start: 201710

REACTIONS (16)
  - Dizziness [Unknown]
  - Fatigue [Unknown]
  - Anaemia [Unknown]
  - Night sweats [Unknown]
  - Headache [Unknown]
  - Pyrexia [Unknown]
  - Cold sweat [Unknown]
  - Dyspnoea [Unknown]
  - Haemorrhage [Unknown]
  - Chills [Unknown]
  - Acne [Unknown]
  - Feeling abnormal [Unknown]
  - Arthralgia [Unknown]
  - Crohn^s disease [Unknown]
  - Confusional state [Unknown]
  - Pain [Unknown]

NARRATIVE: CASE EVENT DATE: 201712
